FAERS Safety Report 14195344 (Version 1)
Quarter: 2017Q4

REPORT INFORMATION
  Report Type: Spontaneous
  Country: US (occurrence: US)
  Receive Date: 20171115
  Receipt Date: 20171115
  Transmission Date: 20180321
  Serious: Yes (Other)
  Sender: FDA-Public Use
  Company Number: None

PATIENT
  Age: 67 Year
  Sex: Female
  Weight: 69.75 kg

DRUGS (7)
  1. SYNTHROID [Concomitant]
     Active Substance: LEVOTHYROXINE SODIUM
  2. PREVACID [Concomitant]
     Active Substance: LANSOPRAZOLE
  3. MULTIVITAMIN [Concomitant]
     Active Substance: VITAMINS
  4. HYOSCYAMINE SULFATE 0.125 MG [Suspect]
     Active Substance: HYOSCYAMINE SULFATE
     Indication: ABDOMINAL PAIN UPPER
     Dosage: ?          QUANTITY:2 TABLET(S);?
     Route: 060
     Dates: start: 20171109, end: 20171110
  5. MAGNESIUM [Concomitant]
     Active Substance: MAGNESIUM
  6. CALCIUM [Concomitant]
     Active Substance: CALCIUM
  7. PRAVASTATIN. [Concomitant]
     Active Substance: PRAVASTATIN

REACTIONS (4)
  - Tinnitus [None]
  - Confusional state [None]
  - Hallucination [None]
  - Gait disturbance [None]

NARRATIVE: CASE EVENT DATE: 20171109
